FAERS Safety Report 6175931-5 (Version None)
Quarter: 2009Q2

REPORT INFORMATION
  Report Type: 
  Country: None (occurrence: None)
  Receive Date: 20090501
  Receipt Date: 20090422
  Transmission Date: 20091009
  Serious: Yes (Hospitalization, Other)
  Sender: FDA-Public Use
  Company Number: PHHY2009IE06286

PATIENT
  Sex: Male
  Weight: 105 kg

DRUGS (5)
  1. CLOZARIL [Suspect]
     Indication: SCHIZOPHRENIA
     Dosage: 150 MG, BID
     Route: 048
     Dates: start: 19940824
  2. CLOZARIL [Suspect]
     Dosage: 75 MG DAILY
     Route: 048
  3. PRAVASTATIN [Concomitant]
     Indication: LIPIDS ABNORMAL
     Dosage: 20 MG DAILY
     Route: 048
  4. NICORETTE [Concomitant]
     Dosage: 2 G, TID
     Route: 048
  5. ZOLPIDEM TARTRATE [Concomitant]
     Indication: SLEEP DISORDER
     Dosage: 10 MG, QD
     Route: 048

REACTIONS (5)
  - ANTIPSYCHOTIC DRUG LEVEL BELOW THERAPEUTIC [None]
  - CONVULSION [None]
  - GLASGOW COMA SCALE ABNORMAL [None]
  - HAEMORRHAGE [None]
  - POSTICTAL STATE [None]
